FAERS Safety Report 10495005 (Version 1)
Quarter: 2014Q4

REPORT INFORMATION
  Report Type: Spontaneous
  Country: FR (occurrence: FR)
  Receive Date: 20141003
  Receipt Date: 20141003
  Transmission Date: 20150528
  Serious: Yes (Hospitalization)
  Sender: FDA-Public Use
  Company Number: FR-SA-2014SA132125

PATIENT
  Age: 76 Year
  Sex: Female

DRUGS (7)
  1. PRIMPERAN [Concomitant]
     Active Substance: METOCLOPRAMIDE HYDROCHLORIDE
  2. LOVENOX [Suspect]
     Active Substance: ENOXAPARIN SODIUM
     Indication: VENA CAVA THROMBOSIS
     Route: 065
     Dates: start: 20140126, end: 20140127
  3. CALCIPARINE [Suspect]
     Active Substance: HEPARIN CALCIUM
     Indication: VENA CAVA THROMBOSIS
     Route: 065
     Dates: start: 20140123, end: 20140126
  4. LOVENOX [Suspect]
     Active Substance: ENOXAPARIN SODIUM
     Indication: VENA CAVA THROMBOSIS
     Route: 065
     Dates: start: 20140122, end: 20140123
  5. LANTUS [Concomitant]
     Active Substance: INSULIN GLARGINE
  6. MOTILIUM [Concomitant]
     Active Substance: DOMPERIDONE
  7. SMECTA [Concomitant]
     Active Substance: MONTMORILLONITE

REACTIONS (2)
  - Skin necrosis [Recovering/Resolving]
  - Injection site plaque [Recovering/Resolving]

NARRATIVE: CASE EVENT DATE: 20140122
